FAERS Safety Report 8297033-4 (Version None)
Quarter: 2012Q2

REPORT INFORMATION
  Report Type: 
  Country: None (occurrence: None)
  Receive Date: 20120413
  Receipt Date: 20120329
  Transmission Date: 20120825
  Serious: Yes (Hospitalization)
  Sender: FDA-Public Use
  Company Number: B0792766A

PATIENT
  Age: 61 Year
  Sex: Female
  Weight: 54.8852 kg

DRUGS (13)
  1. TEPRENONE [Concomitant]
  2. CARBOPLATIN [Concomitant]
  3. DEXAMETHASONE SODIUM PHOSPHATE [Suspect]
     Indication: PROPHYLAXIS
     Dosage: 6.6 MG / PER DAY /  INTRAVENOUS INFUSION
     Route: 042
     Dates: start: 20100614, end: 20100614
  4. PACLITAXEL [Concomitant]
  5. RAMOSETRON HYDROCHLORIDE INJECTION (RAMOSETRON HYDROCHLORIDE) [Suspect]
     Indication: PROPHYLAXIS
     Dosage: .3 MG / PER DAY / INTRAVENOUS
     Route: 042
     Dates: start: 20100614, end: 20100614
  6. RAMOSETRON HYDROCHLORIDE INJECTION (RAMOSETRON HYDROCHLORIDE) [Suspect]
     Indication: PROPHYLAXIS
     Dosage: .3 MG / PER DAY / INTRAVENOUS
     Route: 042
     Dates: start: 20120223, end: 20120223
  7. AZASETRON HYDROCHLORIDE [Concomitant]
  8. RANITIDINE HYDROCHLORIDE [Suspect]
     Indication: PROPHYLAXIS
     Dosage: 50 MG / PER DAY / INTRAVENOUS INFUSION
     Route: 042
     Dates: start: 20120223, end: 20120223
  9. DEXAMETHASONE SODIUM PHOSPHATE [Suspect]
     Indication: PROPHYLAXIS
     Dosage: 6.6 MG / PER DAY / INTRAVENOUS INFUSION
     Route: 042
     Dates: start: 20120223, end: 20120223
  10. RANITIDINE HYDROCHLORIDE [Suspect]
     Indication: PROPHYLAXIS
     Dosage: 50 MG / PER DAY / INTRAVENOUS INFUSION
     Route: 042
     Dates: start: 20100614, end: 20100614
  11. BETAMETHASONE [Concomitant]
  12. DIPHENHYDRAMINE HCL [Concomitant]
  13. ROXATIDINE ACETATE HCL [Concomitant]

REACTIONS (5)
  - TOOTHACHE [None]
  - INFUSION RELATED REACTION [None]
  - COUGH [None]
  - HEADACHE [None]
  - ANAPHYLACTIC SHOCK [None]
